FAERS Safety Report 19944380 (Version 1)
Quarter: 2021Q4

REPORT INFORMATION
  Report Type: Spontaneous
  Country: BG (occurrence: BG)
  Receive Date: 20211011
  Receipt Date: 20211011
  Transmission Date: 20220304
  Serious: Yes (Other)
  Sender: FDA-Public Use
  Company Number: None

PATIENT
  Age: 32 Year
  Sex: Female
  Weight: 53 kg

DRUGS (1)
  1. LEVOFLOXACIN [Suspect]
     Active Substance: LEVOFLOXACIN
     Indication: Urogenital disorder
     Dosage: 2X500 MG FOR 5 DAYS
     Route: 048
     Dates: start: 202102

REACTIONS (10)
  - Depressed level of consciousness [Recovered/Resolved]
  - Palpitations [Recovering/Resolving]
  - Arthralgia [Recovering/Resolving]
  - Myalgia [Recovering/Resolving]
  - Tendon pain [Recovering/Resolving]
  - Dizziness [Recovered/Resolved]
  - Heart rate increased [Recovering/Resolving]
  - Pyrexia [Recovering/Resolving]
  - Asthenia [Recovering/Resolving]
  - Spinal pain [Recovering/Resolving]

NARRATIVE: CASE EVENT DATE: 20210201
